FAERS Safety Report 7047543-2 (Version None)
Quarter: 2010Q4

REPORT INFORMATION
  Report Type: 
  Country: None (occurrence: None)
  Receive Date: 20101015
  Receipt Date: 20101008
  Transmission Date: 20110411
  Serious: Yes (Other)
  Sender: FDA-Public Use
  Company Number: CA-PFIZER INC-2010128125

PATIENT
  Age: 67 Year
  Sex: Male

DRUGS (3)
  1. LIPITOR [Suspect]
     Dosage: 10 MG, UNK
  2. LIPITOR [Suspect]
     Dosage: 40 MG, UNK
  3. VIAGRA [Concomitant]
     Dosage: UNK

REACTIONS (2)
  - ANGIOPLASTY [None]
  - MUSCLE SPASMS [None]
